FAERS Safety Report 18339399 (Version 1)
Quarter: 2020Q4

REPORT INFORMATION
  Report Type: Spontaneous
  Country: US (occurrence: US)
  Receive Date: 20201002
  Receipt Date: 20201002
  Transmission Date: 20210113
  Serious: Yes (Hospitalization)
  Sender: FDA-Public Use
  Company Number: US-JAZZ-2020-US-012829

PATIENT
  Age: 75 Year
  Sex: Male

DRUGS (1)
  1. XYREM [Suspect]
     Active Substance: SODIUM OXYBATE
     Indication: NARCOLEPSY
     Dosage: UNKNOWN DOSING REGIMEN
     Route: 048

REACTIONS (2)
  - Dysarthria [Unknown]
  - Disorientation [Unknown]

NARRATIVE: CASE EVENT DATE: 20200929
